FAERS Safety Report 11220537 (Version 24)
Quarter: 2019Q1

REPORT INFORMATION
  Report Type: Spontaneous
  Country: CA (occurrence: CA)
  Receive Date: 20150626
  Receipt Date: 20190114
  Transmission Date: 20190417
  Serious: Yes (Hospitalization, Other)
  Sender: FDA-Public Use
  Company Number: CA-ROCHE-1599158

PATIENT
  Age: 32 Year
  Sex: Male

DRUGS (33)
  1. XOLAIR [Suspect]
     Active Substance: OMALIZUMAB
     Dosage: UNK
     Route: 058
     Dates: start: 20170927
  2. XOLAIR [Suspect]
     Active Substance: OMALIZUMAB
     Dosage: UNK
     Route: 058
     Dates: start: 20171025
  3. XOLAIR [Suspect]
     Active Substance: OMALIZUMAB
     Dosage: 300 MG, BIW
     Route: 058
     Dates: start: 20180926
  4. XOLAIR [Suspect]
     Active Substance: OMALIZUMAB
     Dosage: 300 MG, BIW
     Route: 058
     Dates: start: 20181107
  5. SINGULAIR [Concomitant]
     Active Substance: MONTELUKAST SODIUM
     Indication: HYPERSENSITIVITY
  6. XOLAIR [Suspect]
     Active Substance: OMALIZUMAB
     Dosage: 300 MG, BIW
     Route: 058
     Dates: start: 20180912
  7. OMNARIS [Concomitant]
     Active Substance: CICLESONIDE
     Indication: SINUSITIS
  8. XOLAIR [Suspect]
     Active Substance: OMALIZUMAB
     Indication: ASTHMA
     Route: 058
     Dates: start: 20110118
  9. XOLAIR [Suspect]
     Active Substance: OMALIZUMAB
     Dosage: UNK
     Route: 058
     Dates: start: 20170222
  10. XOLAIR [Suspect]
     Active Substance: OMALIZUMAB
     Dosage: UNK
     Route: 058
     Dates: start: 20170524
  11. XOLAIR [Suspect]
     Active Substance: OMALIZUMAB
     Dosage: 300 MG, BIW
     Route: 058
     Dates: start: 20180411
  12. XOLAIR [Suspect]
     Active Substance: OMALIZUMAB
     Dosage: 300 MG, BIW
     Route: 058
     Dates: start: 20180829
  13. XOLAIR [Suspect]
     Active Substance: OMALIZUMAB
     Route: 058
     Dates: start: 20181205
  14. SYMBICORT [Concomitant]
     Active Substance: BUDESONIDE\FORMOTEROL FUMARATE DIHYDRATE
     Route: 055
     Dates: end: 2013
  15. VENTOLIN [Concomitant]
     Active Substance: ALBUTEROL SULFATE
     Indication: ASTHMA
  16. XOLAIR [Suspect]
     Active Substance: OMALIZUMAB
     Dosage: UNK
     Route: 058
     Dates: start: 20170201
  17. XOLAIR [Suspect]
     Active Substance: OMALIZUMAB
     Dosage: UNK
     Route: 058
     Dates: start: 20170426
  18. XOLAIR [Suspect]
     Active Substance: OMALIZUMAB
     Dosage: UNK
     Route: 058
     Dates: start: 20180228
  19. XOLAIR [Suspect]
     Active Substance: OMALIZUMAB
     Dosage: 300 MG, BIW
     Route: 058
     Dates: start: 20180411
  20. XOLAIR [Suspect]
     Active Substance: OMALIZUMAB
     Dosage: UNK
     Route: 058
     Dates: start: 20180117
  21. XOLAIR [Suspect]
     Active Substance: OMALIZUMAB
     Dosage: 300 MG, BIW
     Route: 058
     Dates: start: 201805
  22. XOLAIR [Suspect]
     Active Substance: OMALIZUMAB
     Dosage: 300 MG, BIW
     Route: 058
     Dates: start: 201806
  23. SINGULAIR [Concomitant]
     Active Substance: MONTELUKAST SODIUM
     Indication: ASTHMA
     Route: 065
     Dates: start: 2015
  24. QVAR [Concomitant]
     Active Substance: BECLOMETHASONE DIPROPIONATE
     Indication: PRODUCT USED FOR UNKNOWN INDICATION
     Route: 065
  25. VENTOLIN [Concomitant]
     Active Substance: ALBUTEROL SULFATE
     Indication: DYSPNOEA
     Dosage: ALSO AS A TREATMENT DRUG
     Route: 065
     Dates: start: 2013
  26. XOLAIR [Suspect]
     Active Substance: OMALIZUMAB
     Dosage: UNK
     Route: 058
     Dates: start: 20170802
  27. XOLAIR [Suspect]
     Active Substance: OMALIZUMAB
     Dosage: UNK
     Route: 058
     Dates: start: 20180328
  28. XOLAIR [Suspect]
     Active Substance: OMALIZUMAB
     Route: 058
  29. SYMBICORT [Concomitant]
     Active Substance: BUDESONIDE\FORMOTEROL FUMARATE DIHYDRATE
     Dosage: (FOR 2-3 WEEKS)
     Route: 065
  30. VENTOLIN [Concomitant]
     Active Substance: ALBUTEROL SULFATE
     Indication: UPPER RESPIRATORY TRACT INFECTION
     Route: 065
  31. XOLAIR [Suspect]
     Active Substance: OMALIZUMAB
     Dosage: UNK
     Route: 058
     Dates: start: 20171220
  32. SYMBICORT [Concomitant]
     Active Substance: BUDESONIDE\FORMOTEROL FUMARATE DIHYDRATE
     Indication: ASTHMA
     Dosage: FOR 2 TO 3 WEEKS
     Route: 065
     Dates: start: 2013
  33. OMNARIS [Concomitant]
     Active Substance: CICLESONIDE
     Indication: HYPERSENSITIVITY
     Route: 045
     Dates: start: 2013

REACTIONS (26)
  - Asthma [Recovering/Resolving]
  - Sensitivity to weather change [Unknown]
  - Nasopharyngitis [Unknown]
  - Dehydration [Recovered/Resolved]
  - Body temperature decreased [Unknown]
  - Influenza [Unknown]
  - Dyspnoea [Recovering/Resolving]
  - Road traffic accident [Unknown]
  - Sputum discoloured [Not Recovered/Not Resolved]
  - Asthma exercise induced [Unknown]
  - Heart rate increased [Unknown]
  - Wheezing [Recovered/Resolved]
  - Hypersensitivity [Recovering/Resolving]
  - Dust allergy [Recovering/Resolving]
  - Migraine [Recovered/Resolved]
  - Middle insomnia [Unknown]
  - Viral infection [Unknown]
  - Bronchial hyperreactivity [Unknown]
  - Sinus congestion [Unknown]
  - Secretion discharge [Unknown]
  - Upper respiratory tract infection [Recovering/Resolving]
  - Cough [Not Recovered/Not Resolved]
  - Headache [Not Recovered/Not Resolved]
  - Rhinitis [Unknown]
  - Pulmonary congestion [Unknown]
  - Sense of oppression [Recovering/Resolving]

NARRATIVE: CASE EVENT DATE: 201702
